FAERS Safety Report 14393593 (Version 1)
Quarter: 2018Q1

REPORT INFORMATION
  Report Type: Spontaneous
  Country: US (occurrence: US)
  Receive Date: 20180116
  Receipt Date: 20180116
  Transmission Date: 20180509
  Serious: Yes (Hospitalization, Other)
  Sender: FDA-Public Use
  Company Number: None

PATIENT
  Age: 48 Year
  Sex: Male
  Weight: 86.18 kg

DRUGS (8)
  1. FINASTERIDE. [Concomitant]
     Active Substance: FINASTERIDE
  2. XIFAXAN [Suspect]
     Active Substance: RIFAXIMIN
     Indication: CROHN^S DISEASE
     Dosage: 1 TABLET 2-3X/DAY BY MOUTH
     Route: 048
     Dates: start: 20150815, end: 20170206
  3. ATORVASTATIN [Concomitant]
     Active Substance: ATORVASTATIN
  4. QUESTRAN [Concomitant]
     Active Substance: CHOLESTYRAMINE
  5. MESALAMINE. [Concomitant]
     Active Substance: MESALAMINE
  6. MELATONIN [Concomitant]
     Active Substance: MELATONIN
  7. VITAMIN B12 [Concomitant]
     Active Substance: CYANOCOBALAMIN
  8. VITAMIN D3 [Concomitant]
     Active Substance: CHOLECALCIFEROL

REACTIONS (7)
  - Diarrhoea haemorrhagic [None]
  - Pain [None]
  - Clostridium difficile infection [None]
  - Pseudomembranous colitis [None]
  - Tachycardia [None]
  - Systemic inflammatory response syndrome [None]
  - Dehydration [None]

NARRATIVE: CASE EVENT DATE: 20170802
